FAERS Safety Report 9242536 (Version 2)
Quarter: 2013Q2

REPORT INFORMATION
  Report Type: Report from Study
  Country: AR (occurrence: AR)
  Receive Date: 20130419
  Receipt Date: 20130508
  Transmission Date: 20140414
  Serious: Yes (Hospitalization)
  Sender: FDA-Public Use
  Company Number: AR-ROCHE-1215424

PATIENT
  Age: 16 Year
  Sex: Female

DRUGS (2)
  1. XOLAIR [Suspect]
     Indication: ASTHMA
     Route: 065
     Dates: start: 201103, end: 20120208
  2. XOLAIR [Suspect]
     Route: 065
     Dates: start: 2012

REACTIONS (2)
  - Asthma [Recovering/Resolving]
  - Pyrexia [Not Recovered/Not Resolved]
